FAERS Safety Report 10889426 (Version 2)
Quarter: 2015Q1

REPORT INFORMATION
  Report Type: Spontaneous
  Country: DE (occurrence: DE)
  Receive Date: 20150305
  Receipt Date: 20150317
  Transmission Date: 20150721
  Serious: Yes (Life-Threatening, Hospitalization)
  Sender: FDA-Public Use
  Company Number: GXKR2015DE001206

PATIENT
  Age: 51 Year
  Sex: Female
  Weight: 55.2 kg

DRUGS (5)
  1. CLINDAMYCIN [Suspect]
     Active Substance: CLINDAMYCIN\CLINDAMYCIN PHOSPHATE
     Indication: ANTIBIOTIC PROPHYLAXIS
     Dosage: UNK
     Route: 048
  2. PROPYLTHIOURACIL. [Concomitant]
     Active Substance: PROPYLTHIOURACIL
     Indication: BASEDOW^S DISEASE
  3. DOLOPHINE [Concomitant]
     Active Substance: METHADONE HYDROCHLORIDE
     Indication: POLYSUBSTANCE DEPENDENCE
  4. DOXEPIN [Concomitant]
     Active Substance: DOXEPIN
     Indication: POLYSUBSTANCE DEPENDENCE
  5. TETRAHYDROCANNABINOL [Concomitant]
     Active Substance: DRONABINOL

REACTIONS (12)
  - Skin haemorrhage [Recovering/Resolving]
  - Autoimmune disorder [Recovering/Resolving]
  - Activated partial thromboplastin time prolonged [Recovered/Resolved]
  - Thrombocytopenia [Recovering/Resolving]
  - Purpura fulminans [Recovering/Resolving]
  - Disseminated intravascular coagulation [Recovering/Resolving]
  - Prothrombin time prolonged [Recovered/Resolved]
  - International normalised ratio increased [Recovering/Resolving]
  - Protein C deficiency [Recovered/Resolved]
  - Anaemia [Recovering/Resolving]
  - C-reactive protein increased [Recovering/Resolving]
  - Leukopenia [Recovering/Resolving]
